FAERS Safety Report 9503841 (Version 1)
Quarter: 2013Q1

REPORT INFORMATION
  Report Type: Spontaneous
  Country: US (occurrence: None)
  Receive Date: 20130107
  Receipt Date: 20130107
  Transmission Date: 20140127
  Serious: No
  Sender: FDA-Public Use
  Company Number: PHEH2012US019873

PATIENT
  Age: 43 Year
  Sex: Female
  Weight: 99.8 kg

DRUGS (3)
  1. GILENYA [Suspect]
     Indication: MULTIPLE SCLEROSIS
     Dates: start: 20121005
  2. VESICARE (SOLIFENACIN) [Concomitant]
  3. MULTI-MAX TABLET [Concomitant]

REACTIONS (4)
  - Feeling abnormal [None]
  - Fatigue [None]
  - Somnolence [None]
  - Dizziness [None]
